FAERS Safety Report 12659437 (Version 2)
Quarter: 2016Q3

REPORT INFORMATION
  Report Type: Spontaneous
  Country: US (occurrence: US)
  Receive Date: 20160817
  Receipt Date: 20160908
  Transmission Date: 20161109
  Serious: Yes (Hospitalization)
  Sender: FDA-Public Use
  Company Number: US-JNJFOC-20160806802

PATIENT
  Sex: Female

DRUGS (19)
  1. LEFLUNOMIDE. [Concomitant]
     Active Substance: LEFLUNOMIDE
     Route: 065
     Dates: start: 2009
  2. FENOFIBRATE. [Concomitant]
     Active Substance: FENOFIBRATE
     Route: 065
     Dates: start: 2014
  3. MORPHINE [Concomitant]
     Active Substance: MORPHINE
     Dosage: DOSAGE: 1 OR 2, 3 TIMES AS NEEDED
     Route: 065
     Dates: start: 2009
  4. XELJANZ [Concomitant]
     Active Substance: TOFACITINIB CITRATE
     Indication: RHEUMATOID ARTHRITIS
     Dosage: TOFACITINIB CITRATE
     Route: 065
     Dates: start: 201605
  5. OMEPRAZOLE. [Concomitant]
     Active Substance: OMEPRAZOLE
     Route: 065
     Dates: start: 2004
  6. PREDNISONE. [Concomitant]
     Active Substance: PREDNISONE
     Route: 065
  7. POTASSIUM CHLORIDE. [Concomitant]
     Active Substance: POTASSIUM CHLORIDE
     Dosage: DOSAGE : 8 Q
     Route: 065
     Dates: start: 2009
  8. HYDROXYCHLOROQUINE [Concomitant]
     Active Substance: HYDROXYCHLOROQUINE
     Route: 065
     Dates: start: 2009
  9. STOOL SOFTENER [Concomitant]
     Active Substance: DOCUSATE CALCIUM
     Route: 065
     Dates: start: 2014
  10. OYSCO [Concomitant]
     Dosage: 1 TWICE DAILY
     Route: 065
     Dates: start: 2014
  11. BAYER ASPIRIN [Concomitant]
     Active Substance: ASPIRIN
     Route: 065
     Dates: start: 2004
  12. PREDNISONE. [Concomitant]
     Active Substance: PREDNISONE
     Route: 065
     Dates: start: 2013
  13. AMLODIPINE [Concomitant]
     Active Substance: AMLODIPINE BESYLATE
     Route: 065
     Dates: start: 2009
  14. METOPROLOL. [Concomitant]
     Active Substance: METOPROLOL
     Dosage: DOSAGE : 50 MG
     Route: 065
     Dates: start: 2009
  15. HYDROCODONE [Concomitant]
     Active Substance: HYDROCODONE
     Dosage: DRUG START APPROXIMATELY IN 2004. DOSAGE: 10-325 MG, 1 OR 2, 3 TIMES AS NEEDED
     Route: 065
     Dates: start: 2004
  16. ALENDRONATE SODIUM. [Concomitant]
     Active Substance: ALENDRONATE SODIUM
     Route: 065
     Dates: start: 2014
  17. REMICADE [Suspect]
     Active Substance: INFLIXIMAB
     Indication: PRODUCT USED FOR UNKNOWN INDICATION
     Route: 042
     Dates: end: 2015
  18. VITAMIN D [Concomitant]
     Active Substance: CHOLECALCIFEROL
     Dosage: 50,000 UNITS UNSPECIFIED
     Route: 065
     Dates: start: 2014
  19. FUROSEMIDE. [Concomitant]
     Active Substance: FUROSEMIDE
     Dosage: 1 AND HALF DAILY
     Route: 065
     Dates: start: 2009

REACTIONS (2)
  - Osteonecrosis [Not Recovered/Not Resolved]
  - Drug ineffective [Unknown]

NARRATIVE: CASE EVENT DATE: 2016
